FAERS Safety Report 17209865 (Version 3)
Quarter: 2020Q1

REPORT INFORMATION
  Report Type: Report from Study
  Country: US (occurrence: US)
  Receive Date: 20191227
  Receipt Date: 20200211
  Transmission Date: 20200409
  Serious: Yes (Hospitalization)
  Sender: FDA-Public Use
  Company Number: US-PFIZER INC-2019544542

PATIENT
  Age: 53 Year
  Sex: Male
  Weight: 83.3 kg

DRUGS (1)
  1. TESTOSTERONE CIPIONATE [Suspect]
     Active Substance: TESTOSTERONE
     Indication: ANDROGEN DEFICIENCY
     Dosage: 200 MG, (3) SINGLE 200 MG DOSES WITH 45 DAYS BETWEEN TREATMENTS
     Route: 030
     Dates: start: 20191102, end: 20191102

REACTIONS (2)
  - Road traffic accident [Recovered/Resolved]
  - Blood pressure increased [Unknown]

NARRATIVE: CASE EVENT DATE: 201912
